FAERS Safety Report 15617938 (Version 8)
Quarter: 2022Q2

REPORT INFORMATION
  Report Type: Spontaneous
  Country: US (occurrence: US)
  Receive Date: 20181114
  Receipt Date: 20220616
  Transmission Date: 20220721
  Serious: Yes (Hospitalization, Other)
  Sender: FDA-Public Use
  Company Number: US-PFIZER INC-2018461426

PATIENT
  Age: 68 Year
  Sex: Female

DRUGS (2)
  1. XELJANZ [Suspect]
     Active Substance: TOFACITINIB CITRATE
     Indication: Rheumatoid arthritis
     Dosage: 5 MG, 2X/DAY
     Route: 048
     Dates: start: 201810
  2. XELJANZ [Suspect]
     Active Substance: TOFACITINIB CITRATE
     Dosage: 5 MG, 2X/DAY
     Route: 048
     Dates: start: 20181001

REACTIONS (7)
  - Knee arthroplasty [Unknown]
  - Arthralgia [Unknown]
  - Arthralgia [Recovering/Resolving]
  - Joint stiffness [Unknown]
  - Sensitivity to weather change [Unknown]
  - Musculoskeletal stiffness [Unknown]
  - Malaise [Unknown]

NARRATIVE: CASE EVENT DATE: 20220503
